FAERS Safety Report 10417891 (Version 1)
Quarter: 2014Q2

REPORT INFORMATION
  Report Type: Spontaneous
  Country: US (occurrence: None)
  Receive Date: 20140612
  Receipt Date: 20140612
  Transmission Date: 20141212
  Serious: Yes (Other)
  Sender: FDA-Public Use
  Company Number: 2033322

PATIENT
  Age: 8 Year
  Sex: Male
  Weight: 24.22 kg

DRUGS (4)
  1. IONOSOL MB AND DEXTROSE [Suspect]
     Indication: FLUID REPLACEMENT
     Route: 042
     Dates: start: 20131113
  2. TYLENOL [Concomitant]
  3. CITALOPRAM [Concomitant]
  4. GUANFACINE [Concomitant]

REACTIONS (2)
  - No adverse event [None]
  - Expired product administered [None]
